APPROVED DRUG PRODUCT: FUROSEMIDE
Active Ingredient: FUROSEMIDE
Strength: 10MG/ML
Dosage Form/Route: INJECTABLE;INJECTION
Application: N018902 | Product #001 | TE Code: AP
Applicant: FRESENIUS KABI USA LLC
Approved: May 22, 1984 | RLD: No | RS: No | Type: RX